FAERS Safety Report 23162314 (Version 1)
Quarter: 2023Q4

REPORT INFORMATION
  Report Type: Spontaneous
  Country: CA (occurrence: CA)
  Receive Date: 20231109
  Receipt Date: 20231109
  Transmission Date: 20240109
  Serious: No
  Sender: FDA-Public Use
  Company Number: CA-ALKEM LABORATORIES LIMITED-CA-ALKEM-2023-12457

PATIENT
  Age: 27 Year
  Sex: Female

DRUGS (9)
  1. CHOLESTYRAMINE [Suspect]
     Active Substance: CHOLESTYRAMINE
     Indication: Juvenile idiopathic arthritis
     Dosage: 8 GRAM, TID
     Route: 065
  2. NIFEDIPINE [Suspect]
     Active Substance: NIFEDIPINE
     Indication: Hypertension
     Dosage: 30 MILLIGRAM, BID
     Route: 065
  3. FOLIC ACID [Suspect]
     Active Substance: FOLIC ACID
     Indication: Product used for unknown indication
     Dosage: UNK
     Route: 065
  4. HYDROXYCHLOROQUINE [Suspect]
     Active Substance: HYDROXYCHLOROQUINE
     Indication: Juvenile idiopathic arthritis
     Dosage: UNK
     Route: 065
  5. IRON [Suspect]
     Active Substance: IRON
     Indication: Supplementation therapy
     Dosage: UNK
     Route: 065
  6. LEFLUNOMIDE [Suspect]
     Active Substance: LEFLUNOMIDE
     Indication: Juvenile idiopathic arthritis
     Dosage: 20 MILLIGRAM, QD
     Route: 065
  7. LABETALOL [Suspect]
     Active Substance: LABETALOL\LABETALOL HYDROCHLORIDE
     Indication: Hypertension
     Dosage: 200 MILLIGRAM, TID
     Route: 065
  8. METHOTREXATE [Suspect]
     Active Substance: METHOTREXATE
     Indication: Juvenile idiopathic arthritis
     Dosage: UNK
     Route: 065
  9. SULFASALAZINE [Suspect]
     Active Substance: SULFASALAZINE
     Indication: Juvenile idiopathic arthritis
     Dosage: 1000 MILLIGRAM, BID
     Route: 065

REACTIONS (2)
  - Constipation [Unknown]
  - Exposure during pregnancy [Unknown]
